FAERS Safety Report 10441773 (Version 2)
Quarter: 2014Q3

REPORT INFORMATION
  Report Type: Spontaneous
  Country: IT (occurrence: IT)
  Receive Date: 20140909
  Receipt Date: 20140909
  Transmission Date: 20150326
  Serious: Yes (Other)
  Sender: FDA-Public Use
  Company Number: PHHY2014IT102654

PATIENT
  Sex: Male

DRUGS (5)
  1. FLURAZEPAM [Suspect]
     Active Substance: FLURAZEPAM\FLURAZEPAM HYDROCHLORIDE
     Dosage: 30 MG, QD
     Route: 048
     Dates: start: 20140130, end: 20140130
  2. LORAZEPAM. [Suspect]
     Active Substance: LORAZEPAM
     Dosage: 2.5 MG, UNK
     Route: 048
     Dates: start: 20140130, end: 20140130
  3. LYRICA [Suspect]
     Active Substance: PREGABALIN
     Dosage: 150 MG, QD
     Route: 048
     Dates: start: 20140130, end: 20140130
  4. PEGINTRON [Concomitant]
     Active Substance: PEGINTERFERON ALFA-2B
  5. RIBAVIRIN. [Concomitant]
     Active Substance: RIBAVIRIN

REACTIONS (3)
  - Somnolence [Recovered/Resolved]
  - Drug abuse [Recovered/Resolved]
  - Mydriasis [Recovered/Resolved]

NARRATIVE: CASE EVENT DATE: 20140131
